FAERS Safety Report 4746430-X (Version None)
Quarter: 2005Q3

REPORT INFORMATION
  Report Type: 
  Country: None (occurrence: None)
  Receive Date: 20050816
  Receipt Date: 20050816
  Transmission Date: 20060218
  Serious: Yes (Other)
  Sender: FDA-Public Use
  Company Number: None

PATIENT
  Sex: Male
  Weight: 82.1011 kg

DRUGS (4)
  1. GATIFLOXACIN [Suspect]
     Indication: PROSTATITIS
     Dosage: 400 MG  DAILY
  2. DIAZIDE [Concomitant]
  3. NIFEDIPINE [Concomitant]
  4. SIMVASTATIN [Concomitant]

REACTIONS (1)
  - RASH GENERALISED [None]
